FAERS Safety Report 14552871 (Version 2)
Quarter: 2018Q1

REPORT INFORMATION
  Report Type: Report from Study
  Country: IT (occurrence: IT)
  Receive Date: 20180220
  Receipt Date: 20180305
  Transmission Date: 20180509
  Serious: No
  Sender: FDA-Public Use
  Company Number: IT-AMGEN-ITANI2017185337

PATIENT
  Age: 72 Year
  Sex: Male
  Weight: 93 kg

DRUGS (2)
  1. PANITUMUMAB [Suspect]
     Active Substance: PANITUMUMAB
     Indication: COLORECTAL CANCER METASTATIC
     Dosage: 594 UNK, Q2WK
     Route: 042
     Dates: start: 20171120
  2. PANITUMUMAB [Suspect]
     Active Substance: PANITUMUMAB
     Dosage: 570 UNK, Q2WK
     Route: 042
     Dates: start: 20180214

REACTIONS (7)
  - Asthenia [Unknown]
  - Neurotoxicity [Recovered/Resolved]
  - Escherichia infection [Recovered/Resolved]
  - Pyrexia [Recovered/Resolved]
  - Skin toxicity [Not Recovered/Not Resolved]
  - Dyspnoea [Recovered/Resolved]
  - Mucosal inflammation [Not Recovered/Not Resolved]

NARRATIVE: CASE EVENT DATE: 20171201
